FAERS Safety Report 8896318 (Version 1)
Quarter: 2012Q4

REPORT INFORMATION
  Report Type: Spontaneous
  Country: US (occurrence: None)
  Receive Date: 20121031
  Receipt Date: 20121031
  Transmission Date: 20130627
  Serious: Yes (Hospitalization)
  Sender: FDA-Public Use
  Company Number: AUR-APL-2012-04605

PATIENT
  Age: 15 Month
  Sex: Male

DRUGS (3)
  1. CEFTRIAXONE (CEFTRIAXONE) [Suspect]
     Indication: ANTIBIOTIC THERAPY
     Dosage: 80 mg/kg/day
  2. TEICOPLANIN [Suspect]
     Indication: ANTIBIOTIC THERAPY
     Dosage: 20 mg/kg/day
     Route: 042
  3. TEICOPLANIN [Suspect]
     Indication: ANTIBIOTIC THERAPY
     Dosage: 10 mg/kg/day
     Route: 042

REACTIONS (2)
  - Pyrexia [None]
  - Rash maculo-papular [None]
